FAERS Safety Report 25864291 (Version 2)
Quarter: 2025Q4

REPORT INFORMATION
  Report Type: Spontaneous
  Country: EU (occurrence: EU)
  Receive Date: 20250930
  Receipt Date: 20251017
  Transmission Date: 20260118
  Serious: Yes (Death)
  Sender: BOEHRINGER INGELHEIM
  Company Number: EU-BoehringerIngelheim-2025-BI-098307

PATIENT
  Age: 74 Year
  Sex: Male

DRUGS (1)
  1. OFEV [Suspect]
     Active Substance: NINTEDANIB
     Indication: Pulmonary fibrosis
     Dosage: 100 MG AT 8 AM AND 150 MG AT 8 PM
     Dates: end: 20250813

REACTIONS (1)
  - Death [Fatal]

NARRATIVE: CASE EVENT DATE: 20250813
